FAERS Safety Report 9917655 (Version 1)
Quarter: 2014Q1

REPORT INFORMATION
  Report Type: Report from Study
  Country: US (occurrence: US)
  Receive Date: 20140221
  Receipt Date: 20140221
  Transmission Date: 20141002
  Serious: Yes (Other)
  Sender: FDA-Public Use
  Company Number: US-ABBVIE-14P-163-1202556-00

PATIENT
  Sex: Male

DRUGS (14)
  1. HUMIRA [Suspect]
     Indication: PSORIATIC ARTHROPATHY
     Dates: start: 201110, end: 20140126
  2. LANTUS [Concomitant]
     Indication: PRODUCT USED FOR UNKNOWN INDICATION
     Dosage: QPM
  3. GLUCOPHAGE [Concomitant]
     Indication: DIABETES MELLITUS
  4. LABETALOL [Concomitant]
     Indication: CARDIAC DISORDER
  5. LABETALOL [Concomitant]
     Indication: BLOOD PRESSURE
     Dates: start: 201401
  6. NORVASC [Concomitant]
     Indication: BLOOD PRESSURE
  7. LOSARTAN [Concomitant]
     Indication: BLOOD PRESSURE
  8. ZANTAC [Concomitant]
     Indication: GASTRIC DISORDER
  9. ZANTAC [Concomitant]
     Indication: GASTROOESOPHAGEAL REFLUX DISEASE
  10. ANDROGEL [Concomitant]
     Indication: PRODUCT USED FOR UNKNOWN INDICATION
     Dosage: MALE HORMONE RUBS UNDER ARM/1 PUMP DAILY
  11. FISH OIL [Concomitant]
     Indication: PRODUCT USED FOR UNKNOWN INDICATION
  12. MULTIVITAMIN [Concomitant]
     Indication: PRODUCT USED FOR UNKNOWN INDICATION
  13. DONEPEZIL [Concomitant]
     Indication: MEMORY IMPAIRMENT
  14. DIVALPROEX [Concomitant]
     Indication: CONVULSION
     Dates: start: 201110

REACTIONS (11)
  - Convulsion [Unknown]
  - Bladder spasm [Unknown]
  - Urinary incontinence [Unknown]
  - Sinusitis [Unknown]
  - Asthenia [Recovered/Resolved]
  - Hypersomnia [Unknown]
  - Malaise [Recovered/Resolved]
  - Disorientation [Unknown]
  - Depression [Unknown]
  - Eye disorder [Unknown]
  - Cardiac valve disease [Unknown]
